FAERS Safety Report 4364736-3 (Version None)
Quarter: 2004Q2

REPORT INFORMATION
  Report Type: 
  Country: None (occurrence: None)
  Receive Date: 20040521
  Receipt Date: 20040503
  Transmission Date: 20050107
  Serious: Yes (Death, Hospitalization)
  Sender: FDA-Public Use
  Company Number: US_0405102811

PATIENT
  Age: 70 Year
  Sex: Male
  Weight: 49 kg

DRUGS (5)
  1. GEMZAR [Suspect]
     Dosage: 1600 MG
     Dates: start: 20040404
  2. TAXOL [Concomitant]
  3. BENADRYL [Concomitant]
  4. DEXAMETHASONE [Concomitant]
  5. CIMETIDINE HCL [Concomitant]

REACTIONS (4)
  - AGITATION [None]
  - ATRIAL FIBRILLATION [None]
  - CONFUSIONAL STATE [None]
  - RESPIRATORY FAILURE [None]
